FAERS Safety Report 22366785 (Version 2)
Quarter: 2023Q2

REPORT INFORMATION
  Report Type: Spontaneous
  Country: US (occurrence: US)
  Receive Date: 20230525
  Receipt Date: 20230608
  Transmission Date: 20230721
  Serious: Yes (Death)
  Sender: FDA-Public Use
  Company Number: US-PFIZER INC-2020453054

PATIENT
  Age: 91 Year
  Sex: Female
  Weight: 49.9 kg

DRUGS (3)
  1. VYNDAMAX [Suspect]
     Active Substance: TAFAMIDIS
     Indication: Amyloidosis
     Dosage: 61 MG, DAILY
     Route: 048
     Dates: start: 202011, end: 20201115
  2. VYNDAMAX [Suspect]
     Active Substance: TAFAMIDIS
     Dosage: 122 MG, DAILY
     Route: 048
     Dates: start: 20201116, end: 20201116
  3. VYNDAMAX [Suspect]
     Active Substance: TAFAMIDIS
     Dosage: 61 MG, DAILY
     Dates: start: 20201117

REACTIONS (3)
  - Cardiac failure congestive [Fatal]
  - Dysphagia [Unknown]
  - Overdose [Unknown]

NARRATIVE: CASE EVENT DATE: 20201116
